FAERS Safety Report 12887361 (Version 1)
Quarter: 2016Q4

REPORT INFORMATION
  Report Type: Report from Study
  Country: US (occurrence: US)
  Receive Date: 20161026
  Receipt Date: 20161026
  Transmission Date: 20170207
  Serious: Yes (Death)
  Sender: FDA-Public Use
  Company Number: US-JAZZ-2016-US-006408

PATIENT
  Age: 2 Year
  Sex: Female

DRUGS (1)
  1. DEFIBROTIDE (INV) [Suspect]
     Active Substance: DEFIBROTIDE SODIUM
     Indication: VENOOCCLUSIVE DISEASE
     Dosage: 320 MG, QD
     Route: 042
     Dates: start: 20160229, end: 20160318

REACTIONS (1)
  - Hepatic failure [Fatal]

NARRATIVE: CASE EVENT DATE: 20160228
